FAERS Safety Report 4924908-3 (Version None)
Quarter: 2006Q1

REPORT INFORMATION
  Report Type: 
  Country: None (occurrence: None)
  Receive Date: 20060127
  Receipt Date: 20051229
  Transmission Date: 20060701
  Serious: Yes (Other)
  Sender: FDA-Public Use
  Company Number: 2006001137

PATIENT
  Age: 44 Year
  Sex: Male
  Weight: 76.2043 kg

DRUGS (2)
  1. LYRICA [Suspect]
     Indication: BACK PAIN
     Dosage: 150 MG (75 MG, 2 IN 1 D), ORAL
     Route: 048
     Dates: start: 20051207
  2. ULTRACET [Concomitant]

REACTIONS (1)
  - ERECTILE DYSFUNCTION [None]
